FAERS Safety Report 18161205 (Version 1)
Quarter: 2020Q3

REPORT INFORMATION
  Report Type: Spontaneous
  Country: US (occurrence: NL)
  Receive Date: 20200818
  Receipt Date: 20200818
  Transmission Date: 20201103
  Serious: Yes (Other)
  Sender: FDA-Public Use
  Company Number: US-NOVEN PHARMACEUTICALS, INC.-2020NL004451

PATIENT
  Sex: Male

DRUGS (1)
  1. METHYLPHENIDATE. [Suspect]
     Active Substance: METHYLPHENIDATE
     Indication: DISTURBANCE IN ATTENTION
     Route: 065

REACTIONS (6)
  - Leukocytosis [Recovered/Resolved]
  - Thrombosis [Unknown]
  - Lethargy [Unknown]
  - Eosinophilia [Recovered/Resolved]
  - Urinary tract infection [Unknown]
  - Confusional state [Unknown]
